FAERS Safety Report 5050651-9 (Version None)
Quarter: 2006Q3

REPORT INFORMATION
  Report Type: 
  Country: None (occurrence: None)
  Receive Date: 20060710
  Receipt Date: 20060622
  Transmission Date: 20061208
  Serious: Yes (Other)
  Sender: FDA-Public Use
  Company Number: 2006073174

PATIENT
  Age: 40 Year
  Sex: Male
  Weight: 64 kg

DRUGS (1)
  1. NICORETTE [Suspect]
     Indication: SMOKING CESSATION THERAPY
     Dosage: 12 -18 CAPS (120-180 MG) DAILY AS NEEDED, ORAL
     Route: 048
     Dates: start: 20000801

REACTIONS (11)
  - ARTHRALGIA [None]
  - DECOMPRESSION SICKNESS [None]
  - DISORIENTATION [None]
  - DRUG ABUSER [None]
  - DRUG DEPENDENCE [None]
  - FATIGUE [None]
  - HEADACHE [None]
  - INTENTIONAL OVERDOSE [None]
  - NEUROLOGICAL SYMPTOM [None]
  - TUNNEL VISION [None]
  - VISUAL ACUITY REDUCED [None]
